FAERS Safety Report 4902180-8 (Version None)
Quarter: 2006Q1

REPORT INFORMATION
  Report Type: 
  Country: None (occurrence: None)
  Receive Date: 20060206
  Receipt Date: 20060130
  Transmission Date: 20060701
  Serious: Yes (Hospitalization)
  Sender: FDA-Public Use
  Company Number: AU-MERCK-0602AUS00001

PATIENT
  Age: 76 Year
  Sex: Male
  Weight: 66 kg

DRUGS (8)
  1. NOROXIN [Suspect]
     Indication: URINARY TRACT DISORDER
     Route: 048
     Dates: start: 20031223, end: 20031227
  2. PANAMAX [Concomitant]
     Route: 065
  3. ENDEP [Concomitant]
     Route: 065
  4. KAPANOL [Concomitant]
     Route: 065
  5. ORDINE [Concomitant]
     Route: 065
  6. SOMAC [Concomitant]
     Route: 065
  7. PRAMIN [Concomitant]
     Route: 065
  8. METAMUCIL [Concomitant]
     Route: 065

REACTIONS (4)
  - ABASIA [None]
  - ARTHRALGIA [None]
  - BACK PAIN [None]
  - TENDONITIS [None]
